FAERS Safety Report 14965849 (Version 1)
Quarter: 2018Q2

REPORT INFORMATION
  Report Type: Spontaneous
  Country: CA (occurrence: CA)
  Receive Date: 20180602
  Receipt Date: 20180602
  Transmission Date: 20180711
  Serious: Yes (Other)
  Sender: FDA-Public Use
  Company Number: CA-TEVA-2018-CA-898112

PATIENT
  Sex: Male

DRUGS (1)
  1. VALSARTAN AND HYDROCHLOROTHIAZIDE [Suspect]
     Active Substance: HYDROCHLOROTHIAZIDE\VALSARTAN
     Route: 065

REACTIONS (1)
  - Labile blood pressure [Unknown]
